FAERS Safety Report 14346704 (Version 2)
Quarter: 2018Q1

REPORT INFORMATION
  Report Type: Spontaneous
  Country: FR (occurrence: FR)
  Receive Date: 20180103
  Receipt Date: 20180222
  Transmission Date: 20180509
  Serious: Yes (Life-Threatening, Other)
  Sender: FDA-Public Use
  Company Number: FR-RARE DISEASE THERAPEUTICS, INC.-2038233

PATIENT
  Age: 6 Year
  Sex: Female

DRUGS (19)
  1. PURIXAN [Suspect]
     Active Substance: MERCAPTOPURINE
     Indication: ACUTE LYMPHOCYTIC LEUKAEMIA
     Route: 048
     Dates: start: 20171116
  2. HYDROCORTISONE. [Suspect]
     Active Substance: HYDROCORTISONE
     Route: 037
     Dates: start: 20171118, end: 20171118
  3. BACTRIM [Concomitant]
     Active Substance: SULFAMETHOXAZOLE\TRIMETHOPRIM
  4. ATARAX [Concomitant]
     Active Substance: HYDROXYZINE HYDROCHLORIDE
  5. BECILAN [Concomitant]
     Active Substance: PYRIDOXINE
  6. METHOTREXATE. [Suspect]
     Active Substance: METHOTREXATE
     Route: 037
     Dates: start: 20171118, end: 20171118
  7. CYCLOPHOSPHAMIDE. [Suspect]
     Active Substance: CYCLOPHOSPHAMIDE
     Route: 042
     Dates: start: 20171116, end: 20171116
  8. PEGASPARGASE [Suspect]
     Active Substance: PEGASPARGASE
     Route: 042
     Dates: start: 20171130, end: 20171130
  9. ZOPHREN [Concomitant]
     Active Substance: ONDANSETRON
  10. SPASFON [Concomitant]
     Active Substance: PHLOROGLUCINOL\1,3,5-TRIMETHOXYBENZENE
  11. LANSOYL [Concomitant]
     Active Substance: MINERAL OIL
  12. BEVITINE [Concomitant]
     Active Substance: THIAMINE
  13. LARGACTIL [Concomitant]
     Active Substance: CHLORPROMAZINE
  14. URSOLVAN [Concomitant]
     Active Substance: URSODIOL
  15. OMEPRAZOLE. [Concomitant]
     Active Substance: OMEPRAZOLE
  16. CYTARABINE. [Suspect]
     Active Substance: CYTARABINE
     Route: 042
     Dates: start: 20171118, end: 20171128
  17. CYTARABINE. [Suspect]
     Active Substance: CYTARABINE
     Route: 037
     Dates: start: 20171118, end: 20171118
  18. CORTANCYL [Concomitant]
     Active Substance: PREDNISONE
  19. VINCRISTINE [Suspect]
     Active Substance: VINCRISTINE
     Route: 042
     Dates: start: 20171130, end: 20171130

REACTIONS (2)
  - Pancreatitis acute [Not Recovered/Not Resolved]
  - Escherichia sepsis [Not Recovered/Not Resolved]

NARRATIVE: CASE EVENT DATE: 20171206
